FAERS Safety Report 16659804 (Version 2)
Quarter: 2019Q3

REPORT INFORMATION
  Report Type: Spontaneous
  Country: US (occurrence: US)
  Receive Date: 20190802
  Receipt Date: 20190813
  Transmission Date: 20191004
  Serious: No
  Sender: FDA-Public Use
  Company Number: US-HORIZON-ACT-0218-2019

PATIENT
  Age: 18 Year
  Sex: Male

DRUGS (3)
  1. POSACONAZOLE [Concomitant]
     Active Substance: POSACONAZOLE
  2. ACTIMMUNE [Suspect]
     Active Substance: INTERFERON GAMMA-1B
     Indication: CHRONIC GRANULOMATOUS DISEASE
     Dosage: 0.5 ML THREE TIMES A WEEK (TID)
     Route: 058
     Dates: start: 20121112
  3. LEVAQUIN [Concomitant]
     Active Substance: LEVOFLOXACIN

REACTIONS (1)
  - Seborrhoeic dermatitis [Unknown]
